FAERS Safety Report 13597931 (Version 1)
Quarter: 2017Q2

REPORT INFORMATION
  Report Type: Spontaneous
  Country: US (occurrence: US)
  Receive Date: 20170531
  Receipt Date: 20170531
  Transmission Date: 20170830
  Serious: Yes (Other)
  Sender: FDA-Public Use
  Company Number: US-BAYER-2017-098130

PATIENT
  Sex: Female

DRUGS (28)
  1. CLOPIDOGREL [Concomitant]
     Active Substance: CLOPIDOGREL BISULFATE
     Dosage: 75 MG, QD
     Route: 048
     Dates: start: 20170411
  2. DOXEPIN [Concomitant]
     Active Substance: DOXEPIN
     Dosage: 50 MG, UNK
     Dates: start: 20170413
  3. METHOTREXATE SODIUM. [Concomitant]
     Active Substance: METHOTREXATE SODIUM
     Dosage: 2.5 MG, UNK
     Dates: start: 20170210
  4. SPIRONOLACTONE. [Concomitant]
     Active Substance: SPIRONOLACTONE
     Dosage: 2 DF, BID
     Route: 048
     Dates: start: 20170419
  5. HYDROXYCHLOROQUINE [Concomitant]
     Active Substance: HYDROXYCHLOROQUINE
     Dosage: 200 MG, BID
     Route: 048
     Dates: start: 20170310
  6. NITROSTAT [Concomitant]
     Active Substance: NITROGLYCERIN
     Indication: CHEST PAIN
     Dosage: 0.4 MG, PRN (EVERY 5 MINS, DO NOT EXCEED 3 DOSES IN 15 MINS)
     Route: 060
     Dates: start: 20170210
  7. OLOPATADINE. [Concomitant]
     Active Substance: OLOPATADINE
     Dosage: 1 DF, QD (TO THE AFFECTED EYE)
     Route: 047
     Dates: start: 20170405
  8. BAYER ASPIRIN [Suspect]
     Active Substance: ASPIRIN
  9. COMBIVENT [Concomitant]
     Active Substance: ALBUTEROL SULFATE\IPRATROPIUM BROMIDE
     Dosage: 1 PUFF(S), BID
     Route: 045
     Dates: start: 20170210
  10. POLYETHYLENE GLYCOL [Concomitant]
     Active Substance: POLYETHYLENE GLYCOLS
     Dosage: 17 G, MIXED WITH 8 OZ. WATER, JUICE, SODA, COFFEE OR TEA
     Route: 048
     Dates: start: 20170210
  11. PROCTOSOL HC [Concomitant]
     Dosage: 2.5 %, UNK
     Route: 061
     Dates: start: 20170225
  12. ACETAMINOPHEN AND CODEINE [Concomitant]
     Active Substance: ACETAMINOPHEN\CODEINE PHOSPHATE
     Dosage: 1 DF, PRN (12 HRS)
     Route: 048
     Dates: start: 20170420
  13. CYANOCOBALAMIN. [Concomitant]
     Active Substance: CYANOCOBALAMIN
     Dosage: 500 ?G, QD
     Route: 048
     Dates: start: 20170210
  14. HYDROXYZINE PAMOATE. [Concomitant]
     Active Substance: HYDROXYZINE PAMOATE
     Dosage: 25 MG, BID AS NEEDED
     Route: 048
     Dates: start: 20170325
  15. OLOPATADINE. [Concomitant]
     Active Substance: OLOPATADINE
     Dosage: 1 DF, BID (TO THE AFFECTED EYE)
     Dates: start: 20170406
  16. POLYETHYLENE GLYCOL [Concomitant]
     Active Substance: POLYETHYLENE GLYCOLS
     Dosage: 17 G, UNK
     Route: 048
     Dates: start: 20170407
  17. ESTRADIOL. [Concomitant]
     Active Substance: ESTRADIOL
     Dosage: 1 MG, QD
     Route: 048
     Dates: start: 20170411
  18. FENOFIBRATE. [Concomitant]
     Active Substance: FENOFIBRATE
     Dosage: 160 MG, QD
     Route: 048
     Dates: start: 20170210
  19. FLUOXETINE [Concomitant]
     Active Substance: FLUOXETINE HYDROCHLORIDE
     Dosage: 1 DF, BID
     Route: 048
     Dates: start: 20170419
  20. NICOTINE. [Concomitant]
     Active Substance: NICOTINE
     Dosage: APPLY ONE PATCH, QD
     Route: 062
     Dates: start: 20170222
  21. PANTOPRAZOLE [Concomitant]
     Active Substance: PANTOPRAZOLE
     Dosage: 40 MG, BID
     Route: 048
     Dates: start: 20170325
  22. VITAMIN D [Concomitant]
     Active Substance: CHOLECALCIFEROL
     Dosage: 2000 U, QD
     Route: 048
     Dates: start: 20170405
  23. ATORVASTATIN [Concomitant]
     Active Substance: ATORVASTATIN
     Dosage: 20 MG, UNK
     Dates: start: 20170406
  24. DOXEPIN [Concomitant]
     Active Substance: DOXEPIN
     Dosage: 25 MG, QD (AT BEDTIME)
     Route: 048
     Dates: start: 20170421
  25. FOLIC ACID. [Concomitant]
     Active Substance: FOLIC ACID
     Dosage: 1 MG, QD
     Route: 048
     Dates: start: 20170419
  26. ATORVASTATIN [Concomitant]
     Active Substance: ATORVASTATIN
     Dosage: 10 MG, QD
     Route: 048
     Dates: start: 20170210
  27. LYRICA [Concomitant]
     Active Substance: PREGABALIN
     Dosage: 15 MG, BID
     Route: 048
     Dates: start: 20170310
  28. METHOTREXATE. [Concomitant]
     Active Substance: METHOTREXATE
     Dosage: 4 DF, OW
     Route: 048
     Dates: start: 20170210

REACTIONS (2)
  - Angioedema [Unknown]
  - Swelling face [Unknown]
